FAERS Safety Report 4950812-0 (Version None)
Quarter: 2006Q1

REPORT INFORMATION
  Report Type: 
  Country: None (occurrence: None)
  Receive Date: 20060321
  Receipt Date: 20060321
  Transmission Date: 20060701
  Serious: Yes (Other)
  Sender: FDA-Public Use
  Company Number: None

PATIENT
  Sex: Male
  Weight: 20.8655 kg

DRUGS (2)
  1. ADDERALL XR 10 [Suspect]
     Indication: ATTENTION DEFICIT/HYPERACTIVITY DISORDER
     Dosage: 10 MG ONCE A DAY PO
     Route: 048
     Dates: start: 20040626, end: 20040710
  2. RISPERDAL [Concomitant]

REACTIONS (5)
  - ABNORMAL BEHAVIOUR [None]
  - AGGRESSION [None]
  - ANXIETY [None]
  - PSYCHOTIC DISORDER [None]
  - SCREAMING [None]
